FAERS Safety Report 10250532 (Version 1)
Quarter: 2014Q2

REPORT INFORMATION
  Report Type: Spontaneous
  Country: US (occurrence: None)
  Receive Date: 20140618
  Receipt Date: 20140618
  Transmission Date: 20141212
  Serious: Yes (Other)
  Sender: FDA-Public Use
  Company Number: None

PATIENT
  Age: 41 Year
  Sex: Female

DRUGS (5)
  1. ORTHO EVRA [Suspect]
     Indication: CONTRACEPTION
     Dosage: QUANITY 1, 1, 1 FOR 3 WEEKS, 1 FOR 3 WEEKS
     Dates: start: 20140612, end: 20140613
  2. ORTHO EVRA [Concomitant]
     Indication: CONTRACEPTION
  3. ORTHO EVRA [Concomitant]
  4. ORTHO EVRA [Concomitant]
  5. PATCH [Concomitant]

REACTIONS (1)
  - Headache [None]
